FAERS Safety Report 15894495 (Version 1)
Quarter: 2019Q1

REPORT INFORMATION
  Report Type: Spontaneous
  Country: US (occurrence: US)
  Receive Date: 20190109
  Receipt Date: 20190109
  Transmission Date: 20190417
  Serious: No
  Sender: FDA-Public Use
  Company Number: None

PATIENT
  Age: 72 Year
  Sex: Female
  Weight: 71.22 kg

DRUGS (1)
  1. XELJANZ XR [Suspect]
     Active Substance: TOFACITINIB CITRATE
     Indication: RHEUMATOID ARTHRITIS
     Dosage: TAKE 1 TABLET BY MOUTH ONCE EVERY DAY AS DIRECTED
     Route: 048
     Dates: start: 201704

REACTIONS (2)
  - Therapy cessation [None]
  - Viral infection [None]
